FAERS Safety Report 16918969 (Version 2)
Quarter: 2022Q2

REPORT INFORMATION
  Report Type: Spontaneous
  Country: US (occurrence: US)
  Receive Date: 20191015
  Receipt Date: 20220421
  Transmission Date: 20220721
  Serious: No
  Sender: FDA-Public Use
  Company Number: US-PFIZER INC-2019439584

PATIENT
  Age: 57 Year
  Sex: Female
  Weight: 112.94 kg

DRUGS (8)
  1. RAPAMUNE [Suspect]
     Active Substance: SIROLIMUS
     Indication: Lymphangioleiomyomatosis
     Dosage: 1 MG, DAILY (EVERY MORNING BETWEEN 8 AND 9)
     Dates: start: 2015
  2. RAPAMUNE [Suspect]
     Active Substance: SIROLIMUS
     Indication: Lung disorder
     Dosage: 2 TABLETS, UNK
  3. RAPAMUNE [Suspect]
     Active Substance: SIROLIMUS
     Dosage: 1.5 TABLETS, UNK
  4. RAPAMUNE [Suspect]
     Active Substance: SIROLIMUS
     Dosage: 1 DF, UNK
  5. RAPAMUNE [Suspect]
     Active Substance: SIROLIMUS
     Dosage: 1 MG, 2X/DAY (TAKE 1 TABLET BY MOITH TWICE DAILY)
     Route: 048
  6. METFORMIN [Concomitant]
     Active Substance: METFORMIN HYDROCHLORIDE
     Indication: Type 2 diabetes mellitus
     Dosage: UNK, 2X/DAY
  7. LANTUS [Concomitant]
     Active Substance: INSULIN GLARGINE
     Indication: Type 2 diabetes mellitus
     Dosage: UNK, 1X/DAY [EVERY NIGHT]
  8. TRULICITY [Concomitant]
     Active Substance: DULAGLUTIDE
     Indication: Type 2 diabetes mellitus
     Dosage: UNK, WEEKLY [SATURDAY AT NIGHT]

REACTIONS (4)
  - Weight decreased [Unknown]
  - Glycosylated haemoglobin increased [Recovering/Resolving]
  - Dyspnoea [Unknown]
  - Off label use [Unknown]

NARRATIVE: CASE EVENT DATE: 20160101
